FAERS Safety Report 24216749 (Version 2)
Quarter: 2024Q3

REPORT INFORMATION
  Report Type: Report from Study
  Country: US (occurrence: US)
  Receive Date: 20240816
  Receipt Date: 20240822
  Transmission Date: 20241017
  Serious: No
  Sender: ROCHE
  Company Number: US-ROCHE-10000058218

PATIENT
  Age: 54 Year
  Sex: Female

DRUGS (2)
  1. OCREVUS [Suspect]
     Active Substance: OCRELIZUMAB
     Indication: Multiple sclerosis
     Dosage: LAST INFUSION WAS ON 12-JUL-2024
     Route: 065
     Dates: start: 20230630
  2. OCREVUS [Suspect]
     Active Substance: OCRELIZUMAB
     Indication: Relapsing multiple sclerosis

REACTIONS (4)
  - COVID-19 [Recovered/Resolved]
  - Oropharyngeal pain [Unknown]
  - Aphonia [Unknown]
  - Malaise [Unknown]

NARRATIVE: CASE EVENT DATE: 20240622
